FAERS Safety Report 22345641 (Version 1)
Quarter: 2023Q2

REPORT INFORMATION
  Report Type: Spontaneous
  Country: US (occurrence: None)
  Receive Date: 20230518
  Receipt Date: 20230518
  Transmission Date: 20230722
  Serious: No
  Sender: FDA-Public Use
  Company Number: None

PATIENT
  Sex: Male

DRUGS (1)
  1. STELARA [Suspect]
     Active Substance: USTEKINUMAB
     Indication: Polyarthritis
     Dosage: 45MG  EVERY 12 WEEKS SUB-Q?
     Route: 058
     Dates: start: 20230118

REACTIONS (2)
  - Therapeutic product effect decreased [None]
  - Skin exfoliation [None]
